FAERS Safety Report 21583654 (Version 1)
Quarter: 2022Q4

REPORT INFORMATION
  Report Type: Spontaneous
  Country: US (occurrence: None)
  Receive Date: 20221110
  Receipt Date: 20221110
  Transmission Date: 20230112
  Serious: No
  Sender: FDA-Public Use
  Company Number: None

PATIENT
  Age: 70 Year
  Sex: Female
  Weight: 97.07 kg

DRUGS (21)
  1. LENALIDOMIDE [Suspect]
     Active Substance: LENALIDOMIDE
     Indication: Plasma cell myeloma
     Dosage: 25MG 2W, 1W OFF ORAL?
     Route: 048
  2. ACYCLOVIR [Concomitant]
  3. ALLOPURINOL [Concomitant]
  4. ANASTROZOLE [Concomitant]
  5. ASPIRIN 81 [Concomitant]
  6. BACTRIM DS [Concomitant]
  7. BENEFIBER ORAL POWDER [Concomitant]
  8. COLACE [Concomitant]
  9. COMBIGAN [Concomitant]
  10. DEXAMETHASONE [Concomitant]
  11. FENOFIBRATE [Concomitant]
  12. FUROSEMIDE [Concomitant]
  13. LATANOPROST [Concomitant]
  14. LOSARTAN POTASSIUM [Concomitant]
     Active Substance: LOSARTAN POTASSIUM
  15. MULTIVITAMIN ADULT [Concomitant]
  16. POTASSIUM CHLORIDE CRYS ER [Concomitant]
  17. PROCHLORPERAZINE MALEATE [Concomitant]
  18. TYLENOL VELCADE [Concomitant]
  19. VITAMIN D3 [Concomitant]
  20. XARELTO [Concomitant]
     Active Substance: RIVAROXABAN
  21. ZOFRAN [Concomitant]

REACTIONS (1)
  - Platelet count decreased [None]
